FAERS Safety Report 5194971-6 (Version None)
Quarter: 2006Q4

REPORT INFORMATION
  Report Type: 
  Country: None (occurrence: None)
  Receive Date: 20061227
  Receipt Date: 20061215
  Transmission Date: 20070319
  Serious: Yes (Other)
  Sender: FDA-Public Use
  Company Number: 8020054

PATIENT
  Age: 70 Year
  Sex: Male

DRUGS (4)
  1. KEPPRA [Suspect]
     Indication: GRAND MAL CONVULSION
     Dosage: 500 MG 2/D PO
     Route: 048
     Dates: start: 20061020, end: 20061110
  2. KEPPRA [Suspect]
     Indication: GRAND MAL CONVULSION
     Dosage: PO
     Route: 048
     Dates: start: 20061111, end: 20061201
  3. PHENOBARBITAL TAB [Concomitant]
  4. DIGOXIN [Concomitant]

REACTIONS (11)
  - ATRIAL FIBRILLATION [None]
  - DRUG DOSE OMISSION [None]
  - HEADACHE [None]
  - INCORRECT DOSE ADMINISTERED [None]
  - IRRITABILITY [None]
  - MUSCULOSKELETAL PAIN [None]
  - NECK PAIN [None]
  - PULMONARY CONGESTION [None]
  - RASH [None]
  - SOMNOLENCE [None]
  - TREATMENT NONCOMPLIANCE [None]
